FAERS Safety Report 25507359 (Version 1)
Quarter: 2025Q3

REPORT INFORMATION
  Report Type: Report from Study
  Country: US (occurrence: US)
  Receive Date: 20250703
  Receipt Date: 20250703
  Transmission Date: 20251020
  Serious: Yes (Hospitalization)
  Sender: ELI LILLY AND COMPANY
  Company Number: US-ELI_LILLY_AND_COMPANY-US202411009033

PATIENT
  Age: 81 Year
  Sex: Male

DRUGS (2)
  1. REYVOW [Suspect]
     Active Substance: LASMIDITAN
     Indication: Migraine
     Route: 048
     Dates: start: 20230411
  2. REYVOW [Suspect]
     Active Substance: LASMIDITAN
     Route: 048
     Dates: start: 20250410

REACTIONS (4)
  - Headache [Unknown]
  - Intentional overdose [Unknown]
  - Blood pressure increased [Unknown]
  - Vomiting [Unknown]
